FAERS Safety Report 5112168-2 (Version None)
Quarter: 2006Q3

REPORT INFORMATION
  Report Type: 
  Country: None (occurrence: None)
  Receive Date: 20060922
  Receipt Date: 20060502
  Transmission Date: 20061208
  Serious: No
  Sender: FDA-Public Use
  Company Number: US-GLAXOSMITHKLINE-A0603998A

PATIENT
  Age: 44 Year
  Sex: Male

DRUGS (1)
  1. ABREVA [Suspect]

REACTIONS (3)
  - APPLICATION SITE SWELLING [None]
  - DRUG INEFFECTIVE [None]
  - HERPES SIMPLEX [None]
